APPROVED DRUG PRODUCT: LINACLOTIDE
Active Ingredient: LINACLOTIDE
Strength: 145MCG
Dosage Form/Route: CAPSULE;ORAL
Application: A209611 | Product #001
Applicant: AUROBINDO PHARMA LTD
Approved: Feb 7, 2023 | RLD: No | RS: No | Type: DISCN